FAERS Safety Report 16088181 (Version 5)
Quarter: 2019Q2

REPORT INFORMATION
  Report Type: Report from Study
  Country: CO (occurrence: CO)
  Receive Date: 20190319
  Receipt Date: 20190607
  Transmission Date: 20190711
  Serious: Yes (Hospitalization, Other)
  Sender: FDA-Public Use
  Company Number: CO-ACTELION-A-CH2019-187828

PATIENT
  Age: 35 Year
  Sex: Female
  Weight: 61 kg

DRUGS (2)
  1. OPSUMIT [Suspect]
     Active Substance: MACITENTAN
     Indication: PULMONARY ARTERIAL HYPERTENSION
     Dosage: 10 MG, QD
     Route: 048
     Dates: start: 20181106
  2. SILDENAFIL. [Concomitant]
     Active Substance: SILDENAFIL
     Indication: PRODUCT USED FOR UNKNOWN INDICATION
     Dosage: UNK
     Route: 048

REACTIONS (10)
  - Tricuspid valve incompetence [Not Recovered/Not Resolved]
  - Coronary artery compression [Recovering/Resolving]
  - Right ventricular hypertrophy [Not Recovered/Not Resolved]
  - Oropharyngeal pain [Recovering/Resolving]
  - Adverse event [Unknown]
  - Catheterisation cardiac [Unknown]
  - Right atrial hypertrophy [Not Recovered/Not Resolved]
  - Right ventricular dilatation [Not Recovered/Not Resolved]
  - Pulmonary arterial pressure [Not Recovered/Not Resolved]
  - Chest pain [Recovering/Resolving]

NARRATIVE: CASE EVENT DATE: 20190216
